FAERS Safety Report 7511413-3 (Version None)
Quarter: 2011Q2

REPORT INFORMATION
  Report Type: 
  Country: None (occurrence: None)
  Receive Date: 20110531
  Receipt Date: 20110518
  Transmission Date: 20111010
  Serious: No
  Sender: FDA-Public Use
  Company Number: PHHY2011IT34356

PATIENT
  Sex: Female

DRUGS (3)
  1. TASIGNA [Suspect]
     Indication: CHRONIC MYELOID LEUKAEMIA
     Dosage: 200 MG, BID
     Dates: start: 20110214, end: 20110217
  2. LYMPHOMYOSOT [Concomitant]
  3. RUFEBRAN [Concomitant]

REACTIONS (8)
  - BONE PAIN [None]
  - RASH [None]
  - BURNING SENSATION [None]
  - DIARRHOEA [None]
  - WEIGHT INCREASED [None]
  - HEADACHE [None]
  - SENSE OF OPPRESSION [None]
  - OEDEMA [None]
